FAERS Safety Report 6114451-0 (Version None)
Quarter: 2009Q1

REPORT INFORMATION
  Report Type: 
  Country: None (occurrence: None)
  Receive Date: 20090313
  Receipt Date: 20090302
  Transmission Date: 20090719
  Serious: Yes (Other)
  Sender: FDA-Public Use
  Company Number: PHHY2009DE03479

PATIENT
  Sex: Female

DRUGS (3)
  1. ESTRAGEST TTS [Suspect]
     Indication: MENOPAUSAL SYMPTOMS
     Dosage: UNK
     Route: 062
     Dates: start: 20060201, end: 20081201
  2. DICLOFENAC [Concomitant]
     Indication: CAUDA EQUINA SYNDROME
     Dosage: UNK
     Route: 048
     Dates: start: 20061101
  3. ACTIVELLE [Concomitant]
     Indication: SLEEP DISORDER
     Dosage: UNK
     Route: 048
     Dates: start: 20051101, end: 20060201

REACTIONS (2)
  - ACOUSTIC NEUROMA [None]
  - HEARING IMPAIRED [None]
